FAERS Safety Report 11134450 (Version 3)
Quarter: 2016Q4

REPORT INFORMATION
  Report Type: Report from Study
  Country: US (occurrence: US)
  Receive Date: 20150525
  Receipt Date: 20161003
  Transmission Date: 20170206
  Serious: Yes (Hospitalization, Other)
  Sender: FDA-Public Use
  Company Number: US-ROCHE-1202244

PATIENT
  Age: 81 Year
  Sex: Female
  Weight: 91 kg

DRUGS (7)
  1. CARBOPLATIN. [Suspect]
     Active Substance: CARBOPLATIN
     Indication: ENDOMETRIAL ADENOCARCINOMA
     Dosage: AUC=6 OVER 30 MINUTES ON DAY 1 X 6 CYCLES
     Route: 042
  2. BEVACIZUMAB [Suspect]
     Active Substance: BEVACIZUMAB
     Dosage: COURSE ID :69-86
     Route: 042
     Dates: start: 20150428
  3. PACLITAXEL. [Suspect]
     Active Substance: PACLITAXEL
     Indication: ENDOMETRIAL ADENOCARCINOMA
     Dosage: OVER 3 HOURS ON DAY 1 X 6 CYCLES
     Route: 042
  4. BEVACIZUMAB [Suspect]
     Active Substance: BEVACIZUMAB
     Dosage: COURSE ID :10-16
     Route: 042
     Dates: start: 20150428
  5. BEVACIZUMAB [Suspect]
     Active Substance: BEVACIZUMAB
     Indication: ENDOMETRIAL ADENOCARCINOMA
     Dosage: LAST DOSE ADMINISTERED ON 15/JAN/2013 WAS 1223 MG?LAST DOSE ADMINISTERED ON 28/APR/2015 WAS 1359 MG
     Route: 042
     Dates: start: 20100413
  6. BEVACIZUMAB [Suspect]
     Active Substance: BEVACIZUMAB
     Dosage: COURSE ID :17-68
     Route: 042
     Dates: start: 20150428
  7. BEVACIZUMAB [Suspect]
     Active Substance: BEVACIZUMAB
     Dosage: COURSE ID :1-9
     Route: 042
     Dates: start: 20100413

REACTIONS (9)
  - Lung infection [Recovering/Resolving]
  - Deafness unilateral [Unknown]
  - Peripheral sensory neuropathy [Unknown]
  - Hypokalaemia [Unknown]
  - Neutrophil count decreased [Unknown]
  - Peripheral motor neuropathy [Unknown]
  - Cholecystitis [Unknown]
  - White blood cell count decreased [Unknown]
  - Cholecystitis [Unknown]

NARRATIVE: CASE EVENT DATE: 20130106
